FAERS Safety Report 9586442 (Version 1)
Quarter: 2013Q4

REPORT INFORMATION
  Report Type: Spontaneous
  Country: NL (occurrence: NL)
  Receive Date: 20131003
  Receipt Date: 20131003
  Transmission Date: 20140711
  Serious: Yes (Death)
  Sender: FDA-Public Use
  Company Number: NL-AMGEN-NLDSP2013068454

PATIENT
  Age: 87 Year
  Sex: Male

DRUGS (6)
  1. XGEVA [Suspect]
     Indication: PROPHYLAXIS
     Dosage: UNK UNK, Q4WK
     Route: 065
     Dates: start: 20120705
  2. ESOMEPRAZOL                        /01479301/ [Concomitant]
     Dosage: 40 MG, UNK
  3. OXYNORM [Concomitant]
     Dosage: 10 MG/ML, UNK
  4. BICALUTAMIDE [Concomitant]
     Dosage: 50 MG, UNK
  5. DEXAMETHASON                       /00016001/ [Concomitant]
     Dosage: 10 MG, UNK
  6. CALCICHEW D3 [Concomitant]
     Dosage: 500MG/400IE

REACTIONS (1)
  - Death [Fatal]
